FAERS Safety Report 24963753 (Version 1)
Quarter: 2025Q1

REPORT INFORMATION
  Report Type: Spontaneous
  Country: CA (occurrence: CA)
  Receive Date: 20250213
  Receipt Date: 20250213
  Transmission Date: 20250408
  Serious: Yes (Other)
  Sender: CSL BEHRING
  Company Number: CA-BEH-2025194940

PATIENT
  Age: 63 Year
  Sex: Female

DRUGS (3)
  1. HUMAN IMMUNOGLOBULIN G [Suspect]
     Active Substance: HUMAN IMMUNOGLOBULIN G
     Indication: Primary immunodeficiency syndrome
     Dosage: 8 G, QW
     Route: 058
  2. BECLOMETHASONE [Concomitant]
     Active Substance: BECLOMETHASONE
     Indication: Product used for unknown indication
  3. RUPATADINE FUMARATE [Concomitant]
     Active Substance: RUPATADINE FUMARATE
     Indication: Product used for unknown indication

REACTIONS (8)
  - Anxiety [Recovered/Resolved]
  - Dizziness [Recovered/Resolved]
  - Feeling abnormal [Recovered/Resolved]
  - Hyperhidrosis [Recovered/Resolved]
  - Nausea [Recovered/Resolved]
  - Product dose omission issue [Recovered/Resolved]
  - Syncope [Recovered/Resolved]
  - Off label use [Unknown]
